FAERS Safety Report 7371815-5 (Version None)
Quarter: 2011Q1

REPORT INFORMATION
  Report Type: 
  Country: None (occurrence: None)
  Receive Date: 20110324
  Receipt Date: 20110311
  Transmission Date: 20110831
  Serious: Yes (Other)
  Sender: FDA-Public Use
  Company Number: PHHY2011VE18046

PATIENT
  Sex: Female

DRUGS (1)
  1. ACLASTA [Suspect]
     Dosage: UNK
     Dates: start: 20090101

REACTIONS (2)
  - ACCIDENT [None]
  - LOWER LIMB FRACTURE [None]
